FAERS Safety Report 5832201-X (Version None)
Quarter: 2008Q3

REPORT INFORMATION
  Report Type: 
  Country: None (occurrence: None)
  Receive Date: 20080804
  Receipt Date: 20080724
  Transmission Date: 20090109
  Serious: Yes (Life-Threatening)
  Sender: FDA-Public Use
  Company Number: JP-SANOFI-SYNTHELABO-A01200803896

PATIENT
  Sex: Female
  Weight: 47 kg

DRUGS (9)
  1. ACETAMINOPHEN [Concomitant]
     Dosage: UNK
     Route: 048
     Dates: start: 20080304, end: 20080522
  2. DECADRON [Concomitant]
     Indication: PREMEDICATION
     Dosage: 8 MG
     Route: 042
     Dates: start: 20070823, end: 20080312
  3. KYTRIL [Concomitant]
     Indication: PREMEDICATION
     Dosage: 3 MG
     Route: 042
     Dates: start: 20070823, end: 20080312
  4. ISOVORIN [Concomitant]
     Indication: COLON CANCER
     Dosage: 280 MG/BODY=200 MG/M2
     Route: 041
     Dates: start: 20080312, end: 20080312
  5. FLUOROURACIL [Concomitant]
     Indication: COLON CANCER
     Dosage: 560 MG/BODY=400 MG/M2 IN BOLUS THEN 3360 MG/BODY=2400 MG/M2 AS CONTINUOUS INFUSION
     Route: 040
     Dates: start: 20080312, end: 20080312
  6. FLUOROURACIL [Concomitant]
     Route: 041
     Dates: start: 20080312, end: 20080312
  7. ELPLAT [Suspect]
     Indication: COLON CANCER
     Dosage: 119 MG/BODY=85 MG/M2
     Route: 042
     Dates: start: 20071030, end: 20071030
  8. BUSCOPAN [Concomitant]
     Dosage: UNK
     Route: 048
     Dates: start: 20080311, end: 20080522
  9. AVASTIN [Suspect]
     Dosage: 5MG/KG IN INFUSION ON DAY 1
     Route: 041
     Dates: start: 20080312, end: 20080312

REACTIONS (1)
  - GASTROINTESTINAL PERFORATION [None]
